FAERS Safety Report 6369590-6 (Version None)
Quarter: 2009Q3

REPORT INFORMATION
  Report Type: 
  Country: None (occurrence: None)
  Receive Date: 20090923
  Receipt Date: 20090909
  Transmission Date: 20100115
  Serious: Yes (Other)
  Sender: FDA-Public Use
  Company Number: PHEH2009US11162

PATIENT
  Sex: Female
  Weight: 62.132 kg

DRUGS (5)
  1. ZOMETA [Suspect]
     Indication: METASTASES TO BONE
     Dosage: 4 MG Q 28 DAYS
     Route: 042
     Dates: start: 20050809, end: 20090421
  2. ZOMETA [Suspect]
     Dosage: 3.5 MG Q 28 DAYS
     Route: 042
     Dates: start: 20090525, end: 20090623
  3. DECADRON                                /CAN/ [Concomitant]
  4. FLUOROURACIL [Concomitant]
  5. LEUCOVORIN CALCIUM [Concomitant]

REACTIONS (4)
  - MASTICATION DISORDER [None]
  - OSTEONECROSIS [None]
  - TOOTH DISORDER [None]
  - TOOTH EXTRACTION [None]
